FAERS Safety Report 4930352-5 (Version None)
Quarter: 2006Q1

REPORT INFORMATION
  Report Type: 
  Country: None (occurrence: None)
  Receive Date: 20060302
  Receipt Date: 20050830
  Transmission Date: 20060701
  Serious: Yes (Death)
  Sender: FDA-Public Use
  Company Number: US-GLAXOSMITHKLINE-A0572594A

PATIENT
  Age: 41 Year
  Sex: Female

DRUGS (1)
  1. SEREVENT [Suspect]
     Indication: ASTHMA
     Route: 055

REACTIONS (7)
  - ASTHMA [None]
  - DYSPNOEA [None]
  - INTUBATION COMPLICATION [None]
  - LUNG HYPERINFLATION [None]
  - LUNG INFILTRATION [None]
  - MUSCLE HYPERTROPHY [None]
  - RESPIRATORY DISORDER [None]
